FAERS Safety Report 4382142-2 (Version None)
Quarter: 2004Q2

REPORT INFORMATION
  Report Type: 
  Country: None (occurrence: None)
  Receive Date: 20040617
  Receipt Date: 20030811
  Transmission Date: 20050107
  Serious: Yes (Hospitalization)
  Sender: FDA-Public Use
  Company Number: TAP2003Q01881

PATIENT
  Age: 9 Year
  Sex: Female
  Weight: 63.5036 kg

DRUGS (5)
  1. LUPRON DEPOT [Suspect]
     Indication: PRECOCIOUS PUBERTY
     Dosage: 7.5 MG, 1 IN 1 M, INTRAMUSCULAR
     Route: 030
     Dates: start: 20020901, end: 20021001
  2. ALBUTEROL [Concomitant]
  3. VITAMIN C (ASCORBIC ACID) [Concomitant]
  4. OMEGA OIL (OMEGA [Concomitant]
  5. VITAMIN E [Concomitant]

REACTIONS (10)
  - ARTHRALGIA [None]
  - HEADACHE [None]
  - INJECTION SITE ABSCESS [None]
  - INJECTION SITE CELLULITIS [None]
  - INJECTION SITE DISCOLOURATION [None]
  - INJECTION SITE REACTION [None]
  - NAUSEA [None]
  - PYREXIA [None]
  - VISION BLURRED [None]
  - VOMITING [None]
